FAERS Safety Report 14120211 (Version 1)
Quarter: 2017Q4

REPORT INFORMATION
  Report Type: Spontaneous
  Country: JP (occurrence: JP)
  Receive Date: 20171024
  Receipt Date: 20171024
  Transmission Date: 20180321
  Serious: Yes (Other)
  Sender: FDA-Public Use
  Company Number: JP-GUERBET-JP-20170178

PATIENT
  Age: 83 Year
  Sex: Male

DRUGS (1)
  1. LIPIODOL [Suspect]
     Active Substance: ETHIODIZED OIL
     Indication: PHOTODYNAMIC DIAGNOSTIC PROCEDURE
     Route: 036

REACTIONS (2)
  - Laboratory test interference [Unknown]
  - Product use in unapproved indication [Unknown]
